FAERS Safety Report 21319886 (Version 3)
Quarter: 2022Q4

REPORT INFORMATION
  Report Type: Spontaneous
  Country: US (occurrence: US)
  Receive Date: 20220911
  Receipt Date: 20221118
  Transmission Date: 20230113
  Serious: No
  Sender: FDA-Public Use
  Company Number: US-SA-SAC20220905000760

PATIENT
  Age: 22 Year
  Sex: Male

DRUGS (9)
  1. DUPIXENT [Suspect]
     Active Substance: DUPILUMAB
     Indication: Dermatitis atopic
     Dosage: 300 MG, QOW
     Route: 058
     Dates: start: 20220824
  2. DESONIDE [Concomitant]
     Active Substance: DESONIDE
     Dosage: UNK
  3. EPINEPHRINE [Concomitant]
     Active Substance: EPINEPHRINE
     Dosage: UNK
  4. HYDROCORTISONE VALERATE [Concomitant]
     Active Substance: HYDROCORTISONE VALERATE
     Dosage: UNK
  5. TACROLIMUS [Concomitant]
     Active Substance: TACROLIMUS
     Dosage: UNK
  6. VALACYCLOVIR [Concomitant]
     Active Substance: VALACYCLOVIR HYDROCHLORIDE
     Dosage: UNK
  7. TRIAMCINOLONE [Concomitant]
     Active Substance: TRIAMCINOLONE
     Dosage: UNK
  8. ALPRAZOLAM [Concomitant]
     Active Substance: ALPRAZOLAM
     Dosage: UNK
  9. TACROLIMUS [Concomitant]
     Active Substance: TACROLIMUS
     Dosage: UNK

REACTIONS (5)
  - Nasal congestion [Unknown]
  - Respiratory tract congestion [Unknown]
  - Ocular hyperaemia [Unknown]
  - Eye irritation [Unknown]
  - Eye pruritus [Unknown]

NARRATIVE: CASE EVENT DATE: 20220901
